FAERS Safety Report 17780872 (Version 3)
Quarter: 2021Q4

REPORT INFORMATION
  Report Type: Report from Study
  Country: BR (occurrence: BR)
  Receive Date: 20200513
  Receipt Date: 20211126
  Transmission Date: 20220303
  Serious: No
  Sender: FDA-Public Use
  Company Number: None

PATIENT
  Sex: Male
  Weight: 77 kg

DRUGS (2)
  1. METFORMIN HYDROCHLORIDE\VILDAGLIPTIN [Suspect]
     Active Substance: METFORMIN HYDROCHLORIDE\VILDAGLIPTIN
     Indication: Diabetes mellitus
     Dosage: 2 DF, DAILY (1000MG METFORMIN AND 50MG VILDAGLIPTIN)
     Route: 048
  2. EZETIMIBE [Suspect]
     Active Substance: EZETIMIBE
     Indication: Blood cholesterol
     Dosage: 1 DF, QD (10 MG)
     Route: 048

REACTIONS (2)
  - Skin papilloma [Recovering/Resolving]
  - Blood cholesterol increased [Recovering/Resolving]
